FAERS Safety Report 16800778 (Version 1)
Quarter: 2019Q3

REPORT INFORMATION
  Report Type: Spontaneous
  Country: US (occurrence: US)
  Receive Date: 20190912
  Receipt Date: 20190912
  Transmission Date: 20191005
  Serious: Yes (Other)
  Sender: FDA-Public Use
  Company Number: US-PFIZER INC-2019387147

PATIENT
  Age: 68 Year
  Sex: Female
  Weight: 72.11 kg

DRUGS (25)
  1. ASPIRIN [ACETYLSALICYLIC ACID] [Concomitant]
     Active Substance: ASPIRIN
     Indication: ANTICOAGULANT THERAPY
     Dosage: 162 MG, 1X/DAY (2 PILLS IN MORNING)
  2. ATENOLOL. [Concomitant]
     Active Substance: ATENOLOL
     Indication: BLOOD PRESSURE ABNORMAL
     Dosage: 100 MG, DAILY
     Route: 048
  3. ATENOLOL. [Concomitant]
     Active Substance: ATENOLOL
     Indication: CARDIAC DISORDER
  4. CHOLECALCIFEROL [Concomitant]
     Active Substance: CHOLECALCIFEROL
     Indication: BONE DISORDER
     Dosage: 100000 IU, DAILY (100,000 UNITS VITAMIN D, ONE TABLET BY MOUTH DAILY)
     Route: 048
  5. VOLTAREN [DICLOFENAC] [Concomitant]
     Active Substance: DICLOFENAC SODIUM
     Indication: ARTHRALGIA
     Dosage: 4 G, AS NEEDED
     Route: 061
  6. PRILOSEC [Concomitant]
     Active Substance: OMEPRAZOLE MAGNESIUM
     Indication: GASTRIC ULCER
     Dosage: 20 MG, 2X/DAY (20 MG CAPSULES, 1 PILL TWICE A DAY)
  7. AMLODINE [AMLODIPINE] [Concomitant]
     Indication: BLOOD PRESSURE ABNORMAL
     Dosage: 10 MG, DAILY
  8. PRILOSEC [Concomitant]
     Active Substance: OMEPRAZOLE MAGNESIUM
     Indication: OESOPHAGITIS
  9. PHENERGAN [Concomitant]
     Active Substance: PROMETHAZINE HYDROCHLORIDE
     Indication: NAUSEA
     Dosage: 12.5 MG, AS NEEDED (12.5 MG BY MOUTH ONE TABLET EVERY 4 HOURS AS NEEDED)
     Route: 048
  10. ZANAFLEX [Concomitant]
     Active Substance: TIZANIDINE HYDROCHLORIDE
     Indication: CEREBRAL PALSY
     Dosage: 8 MG, 3X/DAY (4 MG 2 BY MOUTH THREE TIMES A DAY)
     Route: 048
  11. LIPITOR [Concomitant]
     Active Substance: ATORVASTATIN CALCIUM
     Indication: BLOOD CHOLESTEROL ABNORMAL
     Dosage: 80 MG, 1X/DAY (1 TABLET NIGHTLY)
  12. LIDOCAINE. [Concomitant]
     Active Substance: LIDOCAINE
     Indication: PROCTALGIA
     Dosage: 1 G, 2X/DAY (1G DAY TOPICALLY 2 TIMES DAILY)
     Route: 061
  13. CLONIDINE HYDROCHLORIDE. [Concomitant]
     Active Substance: CLONIDINE HYDROCHLORIDE
     Indication: BLOOD PRESSURE ABNORMAL
     Dosage: 0.4 MG, 3X/DAY (0.2 MG 2 TABLETS BY MOUTH EVERY MORNING, EVERY MID DAY, AND EVERY EVENING)
     Route: 048
  14. EX-LAX [PHENOLPHTHALEIN] [Concomitant]
     Active Substance: PHENOLPHTHALEIN
     Indication: CONSTIPATION
     Dosage: 30 MG, 1X/DAY (15 MG BY MOUTH 2 AT BEDTIME)
     Route: 048
  15. DOCUSATE SODIUM. [Concomitant]
     Active Substance: DOCUSATE SODIUM
     Indication: CONSTIPATION
     Dosage: 100 MG, DAILY
     Route: 048
  16. FERROUS SULFATE. [Concomitant]
     Active Substance: FERROUS SULFATE
     Indication: ANAEMIA
     Dosage: 325 MG, 1X/DAY
     Dates: start: 2001
  17. ONDANSETRON [Concomitant]
     Active Substance: ONDANSETRON
     Indication: NAUSEA
     Dosage: 4 MG, AS NEEDED (4 MG ONE TABLET BY MOUTH EVERY 8 HOURS AS NEEDED)
     Route: 048
  18. AMLODINE [AMLODIPINE] [Concomitant]
     Indication: CARDIAC DISORDER
  19. FLUTICASONE. [Concomitant]
     Active Substance: FLUTICASONE
     Indication: ASTHMA
  20. TRAZODONE [Concomitant]
     Active Substance: TRAZODONE HYDROCHLORIDE
     Indication: SLEEP DISORDER
     Dosage: 50 MG, 1X/DAY (NIGHTLY)
     Route: 048
  21. ASPIRIN [ACETYLSALICYLIC ACID] [Concomitant]
     Active Substance: ASPIRIN
     Indication: BLOOD PRESSURE ABNORMAL
  22. LISINOPRIL AND HYDROCHLORTIAZIDE [Concomitant]
     Active Substance: HYDROCHLOROTHIAZIDE\LISINOPRIL
     Indication: HYPERTENSION
     Dosage: 1 DF, 2X/DAY [HYDROCHLOROTHIAZIDE: 25 MG - LISINOPRIL: 20 MG]
     Route: 048
  23. DILANTIN [Suspect]
     Active Substance: PHENYTOIN
     Indication: SEIZURE
     Dosage: 600 MG, DAILY (3 IN MORNING AND 3 IN THE EVENING.)
  24. FLUTICASONE. [Concomitant]
     Active Substance: FLUTICASONE
     Indication: CHRONIC OBSTRUCTIVE PULMONARY DISEASE
     Dosage: 2 DF, AS NEEDED (2 SPRAYS ONE NOSTRIL FOR 14 DAYS FOR FLARE UPS AS NEEDED, DOSE UNKNOWN TO REPORTER)
     Route: 055
     Dates: start: 2001
  25. PROCTOSOL HC [Concomitant]
     Indication: HAEMORRHOIDS
     Dosage: 2.5 %, UNK

REACTIONS (7)
  - Gingival hypertrophy [Unknown]
  - Anaemia [Unknown]
  - Expired product administered [Unknown]
  - Gait disturbance [Unknown]
  - Weight increased [Unknown]
  - Gingival bleeding [Unknown]
  - Osteoarthritis [Unknown]

NARRATIVE: CASE EVENT DATE: 20190904
